FAERS Safety Report 10280580 (Version 3)
Quarter: 2014Q3

REPORT INFORMATION
  Report Type: Report from Study
  Country: US (occurrence: US)
  Receive Date: 20140707
  Receipt Date: 20140902
  Transmission Date: 20150326
  Serious: Yes (Hospitalization, Other)
  Sender: FDA-Public Use
  Company Number: US-SA-2014SA087025

PATIENT
  Age: 64 Year
  Sex: Female

DRUGS (10)
  1. ZOCOR [Concomitant]
     Active Substance: SIMVASTATIN
     Indication: PROPHYLAXIS
  2. NOVOLOG [Concomitant]
     Active Substance: INSULIN ASPART
  3. IMDUR [Concomitant]
     Active Substance: ISOSORBIDE MONONITRATE
  4. NORVASC [Concomitant]
     Active Substance: AMLODIPINE BESYLATE
  5. HUMULIN NOS [Concomitant]
     Active Substance: INSULIN HUMAN
  6. LEVEMIR [Concomitant]
     Active Substance: INSULIN DETEMIR
  7. APIDRA [Suspect]
     Active Substance: INSULIN GLULISINE
     Indication: TYPE 2 DIABETES MELLITUS
     Dosage: DOSE:30 UNIT(S)
     Route: 065
  8. TOPROL XL [Concomitant]
     Active Substance: METOPROLOL SUCCINATE
  9. LANTUS [Suspect]
     Active Substance: INSULIN GLARGINE
     Indication: TYPE 2 DIABETES MELLITUS
     Dosage: DOSE:66 UNIT(S)
     Route: 065
  10. LAMICTAL [Concomitant]
     Active Substance: LAMOTRIGINE
     Indication: CONVULSION

REACTIONS (6)
  - Colon cancer [Unknown]
  - Epilepsy [Unknown]
  - Blister [Unknown]
  - Thermal burn [Unknown]
  - Fall [Unknown]
  - Skin ulcer [Unknown]
